FAERS Safety Report 23597765 (Version 2)
Quarter: 2024Q1

REPORT INFORMATION
  Report Type: Spontaneous
  Country: US (occurrence: US)
  Receive Date: 20240305
  Receipt Date: 20240327
  Transmission Date: 20240409
  Serious: No
  Sender: FDA-Public Use
  Company Number: US-NEUROCRINE BIOSCIENCES INC.-2024NBI01709

PATIENT
  Age: 65 Year
  Sex: Female

DRUGS (17)
  1. INGREZZA [Suspect]
     Active Substance: VALBENAZINE
     Indication: Tardive dyskinesia
     Dosage: 40 MILLIGRAM
     Route: 065
     Dates: start: 20240206, end: 20240220
  2. TYLENOL [Concomitant]
     Active Substance: ACETAMINOPHEN
     Indication: Pyrexia
     Dosage: UNK, PRN
  3. TYLENOL [Concomitant]
     Active Substance: ACETAMINOPHEN
     Indication: Pain
  4. MILK OF MAGNESIA [Concomitant]
     Active Substance: MAGNESIUM HYDROXIDE
  5. DULCOLAX (BISACODYL) [Concomitant]
     Active Substance: BISACODYL
  6. FLEET ENEMA [Concomitant]
     Active Substance: SODIUM PHOSPHATE, DIBASIC\SODIUM PHOSPHATE, MONOBASIC
     Dosage: UNK, PRN
  7. SENNOSIDES A AND B [Concomitant]
     Active Substance: SENNOSIDES A AND B
     Indication: Constipation
  8. ATORVASTATIN [Concomitant]
     Active Substance: ATORVASTATIN
  9. PROVENTIL HFA [SALBUTAMOL] [Concomitant]
  10. CYANOCOBALAMIN [Concomitant]
     Active Substance: CYANOCOBALAMIN
  11. BENZTROPINE MESYLATE [Concomitant]
     Active Substance: BENZTROPINE MESYLATE
  12. HYDROXYZINE [Concomitant]
     Active Substance: HYDROXYZINE HYDROCHLORIDE
     Dosage: UNK, PRN
  13. MEMANTINE [Concomitant]
     Active Substance: MEMANTINE
  14. METFORMIN [Concomitant]
     Active Substance: METFORMIN HYDROCHLORIDE
  15. RISPERDAL [Concomitant]
     Active Substance: RISPERIDONE
  16. DIVALPROEX SODIUM [Concomitant]
     Active Substance: DIVALPROEX SODIUM
  17. TRAZODONE [Concomitant]
     Active Substance: TRAZODONE HYDROCHLORIDE

REACTIONS (3)
  - Hypoxia [Unknown]
  - Decreased appetite [Unknown]
  - Somnolence [Unknown]

NARRATIVE: CASE EVENT DATE: 20240201
